FAERS Safety Report 18663569 (Version 2)
Quarter: 2021Q1

REPORT INFORMATION
  Report Type: Report from Study
  Country: DE (occurrence: DE)
  Receive Date: 20201224
  Receipt Date: 20210120
  Transmission Date: 20210419
  Serious: Yes (Death, Hospitalization, Other)
  Sender: FDA-Public Use
  Company Number: DE-GILEAD-2020-0510325

PATIENT
  Age: 62 Year
  Sex: Male

DRUGS (1)
  1. KTE?X19 [Suspect]
     Active Substance: AXICABTAGENE CILOLEUCEL
     Indication: MANTLE CELL LYMPHOMA
     Dosage: UNK UNK, ONCE
     Route: 042
     Dates: start: 20200918, end: 20200918

REACTIONS (6)
  - Cardiogenic shock [Fatal]
  - Cytokine storm [Recovered/Resolved]
  - Venous thrombosis limb [Unknown]
  - Neurotoxicity [Recovered/Resolved]
  - Bone marrow failure [Recovered/Resolved]
  - Pulmonary embolism [Fatal]

NARRATIVE: CASE EVENT DATE: 20200920
